FAERS Safety Report 7636270-6 (Version None)
Quarter: 2011Q3

REPORT INFORMATION
  Report Type: 
  Country: None (occurrence: None)
  Receive Date: 20110726
  Receipt Date: 20110626
  Transmission Date: 20111222
  Serious: Yes (Hospitalization)
  Sender: FDA-Public Use
  Company Number: SG-BAYER-2011-055053

PATIENT
  Age: 55 Year
  Sex: Male

DRUGS (2)
  1. ASPIRIN [Suspect]
     Dosage: 300 MG, TID
     Route: 048
     Dates: start: 20110418, end: 20110424
  2. DEXAMETHASONE [Concomitant]
     Dosage: UNK UNK, TID
     Route: 048
     Dates: start: 20110418, end: 20110424

REACTIONS (1)
  - HAEMORRHAGE INTRACRANIAL [None]
